FAERS Safety Report 18067737 (Version 3)
Quarter: 2020Q3

REPORT INFORMATION
  Report Type: Spontaneous
  Country: US (occurrence: US)
  Receive Date: 20200724
  Receipt Date: 20200727
  Transmission Date: 20201103
  Serious: Yes (Other)
  Sender: FDA-Public Use
  Company Number: US-SA-2020SA189346

PATIENT

DRUGS (1)
  1. ADMELOG [Suspect]
     Active Substance: INSULIN LISPRO
     Indication: TYPE 1 DIABETES MELLITUS
     Dosage: 42 IU, QD
     Route: 065
     Dates: start: 2017

REACTIONS (3)
  - Visual impairment [Recovering/Resolving]
  - Cardiac disorder [Recovering/Resolving]
  - Cataract [Recovering/Resolving]
